FAERS Safety Report 22126926 (Version 1)
Quarter: 2023Q1

REPORT INFORMATION
  Report Type: Spontaneous
  Country: BR (occurrence: BR)
  Receive Date: 20230322
  Receipt Date: 20230322
  Transmission Date: 20230418
  Serious: Yes (Life-Threatening, Hospitalization, Other)
  Sender: FDA-Public Use
  Company Number: BR-BAYER-2023A032779

PATIENT
  Age: 19 Year
  Sex: Female

DRUGS (2)
  1. MIRENA [Suspect]
     Active Substance: LEVONORGESTREL
     Indication: Contraception
     Dosage: 20?G/DAY
     Route: 015
     Dates: start: 20130404, end: 20161101
  2. MIRENA [Suspect]
     Active Substance: LEVONORGESTREL
     Indication: Menstrual cycle management

REACTIONS (13)
  - Ectopic pregnancy [None]
  - Ruptured ectopic pregnancy [Recovered/Resolved with Sequelae]
  - Hypovolaemic shock [None]
  - Pelvic pain [None]
  - Haemoperitoneum [None]
  - Drug ineffective [None]
  - Abdominal pain [None]
  - Hyperhidrosis [None]
  - Hypotension [None]
  - Vertigo [None]
  - Pallor [None]
  - Vomiting [None]
  - Nausea [None]

NARRATIVE: CASE EVENT DATE: 20161017
